FAERS Safety Report 8975752 (Version 2)
Quarter: 2013Q1

REPORT INFORMATION
  Report Type: Spontaneous
  Country: US (occurrence: US)
  Receive Date: 20121219
  Receipt Date: 20130109
  Transmission Date: 20140127
  Serious: Yes (Hospitalization, Other)
  Sender: FDA-Public Use
  Company Number: US-ROCHE-1169668

PATIENT
  Age: 66 Year
  Sex: Female
  Weight: 77.18 kg

DRUGS (7)
  1. ACTEMRA [Suspect]
     Indication: RHEUMATOID ARTHRITIS
     Route: 042
     Dates: start: 20121108, end: 20121210
  2. ACTEMRA [Suspect]
     Dosage: SECOND INFUSION
     Route: 042
  3. FESO4 [Concomitant]
     Route: 048
  4. KCL [Concomitant]
     Route: 048
  5. NAPROXEN [Concomitant]
     Route: 048
  6. HYDROCHLOROTHIAZIDE/OLMESARTAN MEDOXOMIL [Concomitant]
     Dosage: 25/40 MG QD
     Route: 048
  7. VICODIN [Concomitant]
     Indication: PAIN
     Dosage: DOSE : 5/500 MG
     Route: 048

REACTIONS (9)
  - Neck pain [Unknown]
  - Pain [Recovering/Resolving]
  - Fatigue [Recovering/Resolving]
  - Musculoskeletal stiffness [Recovered/Resolved]
  - Psoriasis [Not Recovered/Not Resolved]
  - Pyrexia [Recovered/Resolved]
  - Chills [Recovered/Resolved]
  - Headache [Recovered/Resolved]
  - Pain [Recovering/Resolving]
